FAERS Safety Report 18832923 (Version 1)
Quarter: 2021Q1

REPORT INFORMATION
  Report Type: Spontaneous
  Country: JP (occurrence: JP)
  Receive Date: 20210201
  Receipt Date: 20210201
  Transmission Date: 20210419
  Serious: Yes (Other)
  Sender: FDA-Public Use
  Company Number: JP-AMGEN-JPNSP2020213897

PATIENT
  Age: 80 Year
  Sex: Female

DRUGS (4)
  1. KYPROLIS [Suspect]
     Active Substance: CARFILZOMIB
     Dosage: 90 MILLIGRAM
     Route: 041
     Dates: start: 20200930, end: 20200930
  2. KYPROLIS [Suspect]
     Active Substance: CARFILZOMIB
     Dosage: 90 MILLIGRAM
     Route: 041
     Dates: start: 20201014, end: 20201014
  3. KYPROLIS [Suspect]
     Active Substance: CARFILZOMIB
     Indication: PLASMA CELL MYELOMA
     Dosage: 30 MILLIGRAM
     Route: 041
     Dates: start: 20200916, end: 20200916
  4. KYPROLIS [Suspect]
     Active Substance: CARFILZOMIB
     Dosage: 100 MILLIGRAM
     Route: 041
     Dates: start: 20200923, end: 20200923

REACTIONS (1)
  - Nephrotic syndrome [Recovering/Resolving]

NARRATIVE: CASE EVENT DATE: 20201016
